FAERS Safety Report 5822300-0 (Version None)
Quarter: 2008Q3

REPORT INFORMATION
  Report Type: 
  Country: None (occurrence: None)
  Receive Date: 20080725
  Receipt Date: 20080414
  Transmission Date: 20090109
  Serious: No
  Sender: FDA-Public Use
  Company Number: US-AMGEN-KDL274451

PATIENT
  Sex: Male
  Weight: 102.2 kg

DRUGS (8)
  1. PROCRIT [Suspect]
     Indication: ANAEMIA
     Dates: start: 20080407
  2. COUMADIN [Concomitant]
  3. FUROSEMIDE [Concomitant]
  4. FINASTERIDE [Concomitant]
  5. ATENOLOL [Concomitant]
  6. SIMVASTATIN [Concomitant]
  7. TERAZOSIN HCL [Concomitant]
  8. PRILOSEC [Concomitant]

REACTIONS (4)
  - ABDOMINAL DISTENSION [None]
  - DIARRHOEA [None]
  - FATIGUE [None]
  - STOMACH DISCOMFORT [None]
